FAERS Safety Report 15337484 (Version 1)
Quarter: 2018Q3

REPORT INFORMATION
  Report Type: Spontaneous
  Country: US (occurrence: US)
  Receive Date: 20180831
  Receipt Date: 20180831
  Transmission Date: 20181010
  Serious: No
  Sender: FDA-Public Use
  Company Number: US-PFIZER INC-2018351643

PATIENT
  Age: 62 Year
  Sex: Male
  Weight: 158 kg

DRUGS (2)
  1. HYDROCODONE [Concomitant]
     Active Substance: HYDROCODONE
     Dosage: UNK UNK, 1X/DAY
  2. GABAPENTIN. [Suspect]
     Active Substance: GABAPENTIN
     Dosage: 2100 MG DAILY (600 MG AT BREAKFAST, 600 MG AT LUNCH AND 900 MG AT BED TIME)
     Route: 048

REACTIONS (1)
  - Drug ineffective [Unknown]
